FAERS Safety Report 11873803 (Version 3)
Quarter: 2021Q3

REPORT INFORMATION
  Report Type: Spontaneous
  Country: DE (occurrence: DE)
  Receive Date: 20151229
  Receipt Date: 20210818
  Transmission Date: 20211014
  Serious: Yes (Hospitalization, Other)
  Sender: FDA-Public Use
  Company Number: DE-AUROBINDO-AUR-APL-2015-10884

PATIENT
  Age: 52 Year
  Sex: Female

DRUGS (5)
  1. SOLIAN [Suspect]
     Active Substance: AMISULPRIDE
     Indication: PRODUCT USED FOR UNKNOWN INDICATION
     Dosage: 600 MILLIGRAM, DAILY
     Route: 048
     Dates: start: 20140801, end: 20150105
  2. SOLIAN [Suspect]
     Active Substance: AMISULPRIDE
     Dosage: 300 MILLIGRAM, DAILY
     Route: 048
     Dates: start: 20150114, end: 20150120
  3. VENLAFAXINE [Suspect]
     Active Substance: VENLAFAXINE HYDROCHLORIDE
     Indication: PRODUCT USED FOR UNKNOWN INDICATION
     Dosage: 150 MILLIGRAM, DAILY
     Route: 048
     Dates: start: 2013
  4. SOLIAN [Suspect]
     Active Substance: AMISULPRIDE
     Dosage: 400 MILLIGRAM, DAILY
     Route: 048
     Dates: start: 20150106, end: 20150113
  5. SOLIAN [Suspect]
     Active Substance: AMISULPRIDE
     Dosage: 150 MILLIGRAM, DAILY
     Route: 048
     Dates: start: 20150121, end: 20150126

REACTIONS (3)
  - Thinking abnormal [Unknown]
  - Dyskinesia [Recovered/Resolved]
  - Anxiety [Unknown]

NARRATIVE: CASE EVENT DATE: 20141001
